FAERS Safety Report 9064062 (Version 2)
Quarter: 2013Q1

REPORT INFORMATION
  Report Type: Spontaneous
  Country: JP (occurrence: JP)
  Receive Date: 20130213
  Receipt Date: 20130307
  Transmission Date: 20140127
  Serious: Yes (Hospitalization, Disabling)
  Sender: FDA-Public Use
  Company Number: JP-009507513-1301JPN011888

PATIENT
  Age: 79 Year
  Sex: Male
  Weight: 60 kg

DRUGS (4)
  1. NU-LOTAN TABLET 50 [Suspect]
     Indication: HYPERTENSION
     Dosage: 50 MG, QD
     Route: 048
     Dates: start: 20121225, end: 20121227
  2. VASOLAN [Concomitant]
     Indication: SUPRAVENTRICULAR EXTRASYSTOLES
     Dosage: 40 MG, QD
     Route: 048
     Dates: start: 20121218
  3. ADOAIR [Concomitant]
     Indication: ASTHMA
     Dosage: 250 MCG, 2/1 DAY
     Route: 055
     Dates: start: 2008
  4. FLUITRAN [Concomitant]
     Dosage: 2 MG, QD
     Route: 048
     Dates: start: 2008

REACTIONS (4)
  - Stevens-Johnson syndrome [Recovered/Resolved]
  - Erythema multiforme [Recovered/Resolved]
  - Enanthema [Recovering/Resolving]
  - Rash [Recovering/Resolving]
